FAERS Safety Report 6292914-5 (Version None)
Quarter: 2009Q3

REPORT INFORMATION
  Report Type: 
  Country: None (occurrence: None)
  Receive Date: 20090729
  Receipt Date: 20090113
  Transmission Date: 20100115
  Serious: Yes (Hospitalization)
  Sender: FDA-Public Use
  Company Number: IT-GUERBET-20090003

PATIENT
  Age: 65 Year
  Sex: Male

DRUGS (1)
  1. DOTAREM: 08GD044A / GADOTERIC ACID [Suspect]
     Indication: NUCLEAR MAGNETIC RESONANCE IMAGING
     Dosage: 19, ML MILLILITRE (S), 1, 1 TOTAL
     Dates: start: 20090109, end: 20090109

REACTIONS (2)
  - PRURITUS [None]
  - URTICARIA [None]
